FAERS Safety Report 7957369-0 (Version None)
Quarter: 2011Q4

REPORT INFORMATION
  Report Type: 
  Country: None (occurrence: None)
  Receive Date: 20111205
  Receipt Date: 20111128
  Transmission Date: 20120403
  Serious: Yes (Hospitalization)
  Sender: FDA-Public Use
  Company Number: GXKR2011DE003467

PATIENT

DRUGS (7)
  1. CLOZAPINE [Suspect]
     Dosage: DAILY DOSE: 62.5 MG MILLIGRAM(S) EVERY DAY
     Route: 048
     Dates: start: 20110818, end: 20110819
  2. CLOZAPINE [Suspect]
     Dosage: DAILY DOSE: 37.5 MG MILLIGRAM(S) EVERY DAY
     Route: 048
     Dates: start: 20110808, end: 20110814
  3. GLIANIMON [Concomitant]
     Dosage: DAILY DOSE: 4 MG MILLIGRAM(S) EVERY DAY
     Route: 048
     Dates: end: 20110729
  4. GLIANIMON [Concomitant]
     Dosage: DAILY DOSE: 3 MG MILLIGRAM(S) EVERY DAY
     Route: 048
     Dates: start: 20110730, end: 20110814
  5. CLOZAPINE [Suspect]
     Dosage: DAILY DOSE: 50 MG MILLIGRAM(S) EVERY DAY
     Route: 048
     Dates: start: 20110815, end: 20110817
  6. CLOZAPINE [Suspect]
     Indication: SCHIZOPHRENIA
     Dosage: DAILY DOSE: 25 MG MILLIGRAM(S) EVERY DAY
     Route: 048
     Dates: start: 20110802
  7. GLIANIMON [Concomitant]
     Dosage: DAILY DOSE: 2 MG MILLIGRAM(S) EVERY DAY
     Route: 048
     Dates: start: 20110815, end: 20110820

REACTIONS (12)
  - ASTHENIA [None]
  - MYOCARDITIS [None]
  - PYREXIA [None]
  - COUGH [None]
  - CHEST PAIN [None]
  - TACHYCARDIA [None]
  - PERICARDITIS [None]
  - TROPONIN T INCREASED [None]
  - SEDATION [None]
  - C-REACTIVE PROTEIN INCREASED [None]
  - FATIGUE [None]
  - PERICARDIAL EFFUSION [None]
